FAERS Safety Report 9928407 (Version 2)
Quarter: 2014Q2

REPORT INFORMATION
  Report Type: Spontaneous
  Country: GB (occurrence: None)
  Receive Date: 20140224
  Receipt Date: 20140523
  Transmission Date: 20141212
  Serious: Yes (Other)
  Sender: FDA-Public Use
  Company Number: AUR-APL-2014-01871

PATIENT
  Age: 54 Year
  Sex: Male
  Weight: 95 kg

DRUGS (2)
  1. ESCITALOPRAM [Suspect]
     Indication: BIPOLAR II DISORDER
  2. GLICLAZIDE [Suspect]
     Indication: DIABETES MELLITUS
     Route: 048
     Dates: start: 201306

REACTIONS (7)
  - Suicidal ideation [None]
  - Inhibitory drug interaction [None]
  - Depressed mood [None]
  - Drug effect decreased [None]
  - Depression [None]
  - Product substitution issue [None]
  - Drug ineffective [None]
